FAERS Safety Report 9548943 (Version 3)
Quarter: 2014Q2

REPORT INFORMATION
  Report Type: Report from Study
  Country: AU (occurrence: AU)
  Receive Date: 20130924
  Receipt Date: 20140507
  Transmission Date: 20141212
  Serious: Yes (Hospitalization)
  Sender: FDA-Public Use
  Company Number: PHHO2013AU012098

PATIENT
  Age: 77 Year
  Sex: Female
  Weight: 84.1 kg

DRUGS (4)
  1. AFINITOR [Suspect]
     Indication: BREAST CANCER METASTATIC
     Dosage: 10 MG, QD
     Dates: start: 20130805, end: 20130913
  2. AFINITOR [Suspect]
     Dosage: 10 MG, QD
     Dates: start: 20130919
  3. EXEMESTANE [Suspect]
     Indication: BREAST CANCER METASTATIC
     Dosage: 25 MG, QD
     Dates: start: 20130805
  4. ATENOLOL [Concomitant]
     Indication: HYPERTENSION
     Dosage: 50 MG, QD
     Dates: end: 20130913

REACTIONS (2)
  - Pulmonary oedema [Recovered/Resolved]
  - Pneumonitis [Recovered/Resolved]
